FAERS Safety Report 5321726-1 (Version None)
Quarter: 2007Q2

REPORT INFORMATION
  Report Type: 
  Country: None (occurrence: None)
  Receive Date: 20070510
  Receipt Date: 20070501
  Transmission Date: 20071010
  Serious: Yes (Other)
  Sender: FDA-Public Use
  Company Number: US-PFIZER INC-2007011711

PATIENT
  Sex: Female

DRUGS (5)
  1. ZOLOFT [Suspect]
  2. CHANTIX [Suspect]
  3. MICRONASE TAB [Suspect]
  4. METFORMIN HCL [Suspect]
  5. GLUCOVANCE [Suspect]

REACTIONS (4)
  - DIABETES MELLITUS [None]
  - FALL [None]
  - MULTIPLE INJURIES [None]
  - WEIGHT INCREASED [None]
